FAERS Safety Report 18983179 (Version 1)
Quarter: 2021Q1

REPORT INFORMATION
  Report Type: Spontaneous
  Country: US (occurrence: US)
  Receive Date: 20210302
  Receipt Date: 20210302
  Transmission Date: 20210420
  Serious: Yes (Death, Life-Threatening, Hospitalization, Disabling)
  Sender: FDA-Public Use
  Company Number: None

PATIENT
  Age: 60 Year
  Sex: Female
  Weight: 58.97 kg

DRUGS (21)
  1. ACETAMINOPHEN. [Concomitant]
     Active Substance: ACETAMINOPHEN
  2. NICOTINE POLACRILEX (NICORETTE) [Concomitant]
  3. AMBIEN [Concomitant]
     Active Substance: ZOLPIDEM TARTRATE
  4. BLACK MAMBA HYPERRUSH [Suspect]
     Active Substance: DIETARY SUPPLEMENT
     Indication: WEIGHT DECREASED
     Dosage: 1 CAPSULE AFTER BREAKFAST, ORAL
     Route: 048
     Dates: start: 201807, end: 20201222
  5. CYCLOBENZAPRINE (FLEXERIL?EQUIVALENT) [Concomitant]
  6. GABAPENTIN (NEURONTIN?EQUIVALENT) [Concomitant]
  7. TOPAMAX [Concomitant]
     Active Substance: TOPIRAMATE
  8. PLAVIX [Concomitant]
     Active Substance: CLOPIDOGREL BISULFATE
  9. HUMIRA [Concomitant]
     Active Substance: ADALIMUMAB
  10. LIDOCAINE (LIDODERM) [Concomitant]
  11. NICOTINE (NICODERM CQ) [Concomitant]
  12. TRAMADOL (ULTRA?EQUIVALENT) [Concomitant]
  13. LIPITOR [Concomitant]
     Active Substance: ATORVASTATIN CALCIUM
  14. LEVOTHYROXINE. [Concomitant]
     Active Substance: LEVOTHYROXINE
  15. METOPROLOL SUCCINATE (TOPROL XL) [Concomitant]
  16. NITROGLYCERIN (NITROQUICK) [Concomitant]
  17. ARAVA [Concomitant]
     Active Substance: LEFLUNOMIDE
  18. METHYL SALICYLATE?MENTHOL (BENGAY?ANALGESIC BALM) [Concomitant]
  19. ASPIRIN. [Concomitant]
     Active Substance: ASPIRIN
  20. HYDROXYCHLOROQUINE (PLAQUENIL?EQUIVALENT) [Concomitant]
  21. LISINOPRIL. [Concomitant]
     Active Substance: LISINOPRIL

REACTIONS (3)
  - Ischaemic cardiomyopathy [None]
  - Myocardial infarction [None]
  - Hypertension [None]

NARRATIVE: CASE EVENT DATE: 20201224
